FAERS Safety Report 5034449-3 (Version None)
Quarter: 2006Q2

REPORT INFORMATION
  Report Type: 
  Country: None (occurrence: None)
  Receive Date: 20060626
  Receipt Date: 20060616
  Transmission Date: 20061013
  Serious: Yes (Hospitalization)
  Sender: FDA-Public Use
  Company Number: US-MERCK-0606USA03119

PATIENT
  Age: 8 Month
  Sex: Male

DRUGS (8)
  1. CANCIDAS [Suspect]
     Indication: ASPERGILLOSIS
     Route: 042
     Dates: start: 20060520
  2. FLUCONAZOLE [Concomitant]
     Route: 065
  3. CEFTRIAXONE SODIUM [Concomitant]
     Route: 065
  4. MAALOX FAST BLOCKER [Concomitant]
     Route: 065
  5. FERROUS SULFATE [Concomitant]
     Route: 065
  6. PREVACID [Concomitant]
     Route: 065
  7. REGLAN [Concomitant]
     Route: 065
  8. TRI-VI-SOL [Concomitant]
     Route: 065

REACTIONS (1)
  - HYPERNATRAEMIA [None]
